FAERS Safety Report 20462247 (Version 1)
Quarter: 2022Q1

REPORT INFORMATION
  Report Type: Other
  Country: None (occurrence: US)
  Receive Date: 20220211
  Receipt Date: 20220211
  Transmission Date: 20220424
  Serious: Yes (Other)
  Sender: FDA-Public Use
  Company Number: US-Breckenridge Pharmaceutical, Inc.-2125804

PATIENT
  Age: 79 Year
  Sex: Female

DRUGS (2)
  1. CARFILZOMIB [Suspect]
     Active Substance: CARFILZOMIB
     Indication: Amyloidosis
     Route: 042
     Dates: start: 202008
  2. DARATUMUMAB [Concomitant]
     Active Substance: DARATUMUMAB
     Route: 058

REACTIONS (6)
  - Volvulus [Recovering/Resolving]
  - Thrombocytopenia [Unknown]
  - Fatigue [Unknown]
  - Nausea [Unknown]
  - Hyponatraemia [Unknown]
  - Leukocytosis [Unknown]
